FAERS Safety Report 6579900-2 (Version None)
Quarter: 2010Q1

REPORT INFORMATION
  Report Type: 
  Country: None (occurrence: None)
  Receive Date: 20100212
  Receipt Date: 20100201
  Transmission Date: 20100710
  Serious: Yes (Hospitalization)
  Sender: FDA-Public Use
  Company Number: ES-NAPPMUNDI-GBR-2010-0006092

PATIENT
  Age: 65 Year
  Sex: Female

DRUGS (2)
  1. MST CONTINUS TABLETS 100 MG [Suspect]
     Indication: COMPLEX REGIONAL PAIN SYNDROME
     Dosage: 200 MG, BID
     Route: 048
     Dates: start: 20091001, end: 20091113
  2. ACTIQ [Suspect]
     Indication: COMPLEX REGIONAL PAIN SYNDROME
     Dosage: 900 UG, TID
     Route: 002
     Dates: start: 20091001, end: 20091113

REACTIONS (5)
  - BILIARY DILATATION [None]
  - HYPOCALCAEMIA [None]
  - HYPOKALAEMIA [None]
  - INTESTINAL OBSTRUCTION [None]
  - METABOLIC ALKALOSIS [None]
